FAERS Safety Report 5146590-5 (Version None)
Quarter: 2006Q4

REPORT INFORMATION
  Report Type: 
  Country: None (occurrence: None)
  Receive Date: 20061109
  Receipt Date: 20061018
  Transmission Date: 20070319
  Serious: Yes (Hospitalization)
  Sender: FDA-Public Use
  Company Number: PHBS2006JP16367

PATIENT
  Age: 31 Year
  Sex: Female

DRUGS (2)
  1. GLUCOCORTICOIDS [Concomitant]
  2. TEGRETOL [Suspect]
     Route: 048

REACTIONS (9)
  - 17-HYDROXYPROGESTERONE INCREASED [None]
  - BLOOD CORTICOTROPHIN INCREASED [None]
  - HEADACHE [None]
  - HYPERTRICHOSIS [None]
  - KIDNEY ENLARGEMENT [None]
  - MENSTRUATION IRREGULAR [None]
  - RENIN DECREASED [None]
  - TREATMENT NONCOMPLIANCE [None]
  - TRIGEMINAL NEURALGIA [None]
